FAERS Safety Report 8444421-9 (Version None)
Quarter: 2012Q2

REPORT INFORMATION
  Report Type: 
  Country: None (occurrence: None)
  Receive Date: 20120612
  Receipt Date: 20120612
  Transmission Date: 20120825
  Serious: No
  Sender: FDA-Public Use
  Company Number: None

PATIENT

DRUGS (1)
  1. ZIPRASIDONE HCL [Suspect]

REACTIONS (7)
  - DIZZINESS [None]
  - PRODUCT SUBSTITUTION ISSUE [None]
  - MEDICATION ERROR [None]
  - HYPERGLYCAEMIC HYPEROSMOLAR NONKETOTIC SYNDROME [None]
  - MENTAL STATUS CHANGES [None]
  - BLOOD GLUCOSE INCREASED [None]
  - VOMITING [None]
